FAERS Safety Report 10685216 (Version 1)
Quarter: 2014Q4

REPORT INFORMATION
  Report Type: Spontaneous
  Country: US (occurrence: None)
  Receive Date: 20141230
  Receipt Date: 20141230
  Transmission Date: 20150529
  Serious: Yes (Disabling)
  Sender: FDA-Public Use
  Company Number: None

PATIENT
  Age: 53 Year
  Sex: Female
  Weight: 64.41 kg

DRUGS (1)
  1. CIPROFLAXIN [Suspect]
     Active Substance: CIPROFLOXACIN
     Indication: SINUSITIS
     Dosage: 500MG 1 TAB. 2 TIMES DAY, I MORNING/NIGHT MOUTH
     Route: 048
     Dates: start: 20131218, end: 20131218

REACTIONS (16)
  - Fibromyalgia [None]
  - Neuritis [None]
  - Radiculitis [None]
  - Peripheral swelling [None]
  - Neuropathy peripheral [None]
  - Migraine [None]
  - Feeling abnormal [None]
  - Heart rate increased [None]
  - Pain [None]
  - Fall [None]
  - Asthenia [None]
  - Facial pain [None]
  - Movement disorder [None]
  - Hypoaesthesia [None]
  - Neuralgia [None]
  - Headache [None]
